FAERS Safety Report 18503670 (Version 1)
Quarter: 2020Q4

REPORT INFORMATION
  Report Type: Spontaneous
  Country: FR (occurrence: FR)
  Receive Date: 20201113
  Receipt Date: 20201113
  Transmission Date: 20210114
  Serious: Yes (Life-Threatening)
  Sender: FDA-Public Use
  Company Number: FR-MYLANLABS-2020M1094945

PATIENT
  Age: 66 Year
  Sex: Female

DRUGS (2)
  1. PACLITAXEL. [Suspect]
     Active Substance: PACLITAXEL
     Indication: OVARIAN CANCER METASTATIC
     Dosage: 30 MILLIGRAM, TOTAL
     Route: 041
     Dates: start: 20000912, end: 20000912
  2. CARBOPLATINE [Concomitant]
     Active Substance: CARBOPLATIN
     Dosage: UNK

REACTIONS (1)
  - Cardio-respiratory arrest [Recovered/Resolved]

NARRATIVE: CASE EVENT DATE: 20000912
